FAERS Safety Report 6703481-3 (Version None)
Quarter: 2010Q2

REPORT INFORMATION
  Report Type: 
  Country: None (occurrence: None)
  Receive Date: 20100428
  Receipt Date: 20100419
  Transmission Date: 20101027
  Serious: Yes (Death)
  Sender: FDA-Public Use
  Company Number: 2010SP022687

PATIENT
  Age: 64 Year
  Sex: Male

DRUGS (18)
  1. MIRTAZAPINE [Suspect]
     Indication: DEPRESSION
     Dosage: 15 MG; QD; PO; SEE IMAGE
     Route: 047
     Dates: end: 20100315
  2. MIRTAZAPINE [Suspect]
     Indication: INSOMNIA
     Dosage: 15 MG; QD; PO; SEE IMAGE
     Route: 047
     Dates: end: 20100315
  3. MIRTAZAPINE [Suspect]
     Indication: DEPRESSION
     Dosage: 15 MG; QD; PO; SEE IMAGE
     Route: 047
     Dates: start: 20100316, end: 20100411
  4. MIRTAZAPINE [Suspect]
     Indication: INSOMNIA
     Dosage: 15 MG; QD; PO; SEE IMAGE
     Route: 047
     Dates: start: 20100316, end: 20100411
  5. MIRTAZAPINE [Suspect]
     Indication: DEPRESSION
     Dosage: 15 MG; QD; PO; SEE IMAGE
     Route: 047
     Dates: start: 20091230
  6. MIRTAZAPINE [Suspect]
     Indication: INSOMNIA
     Dosage: 15 MG; QD; PO; SEE IMAGE
     Route: 047
     Dates: start: 20091230
  7. TRIAZOLAM [Concomitant]
  8. FLUVOXAMINE MALEATE [Concomitant]
  9. ZOLPIDEM TARTRATE [Concomitant]
  10. ALPRAZOLAM [Concomitant]
  11. SULPIRIDE [Concomitant]
  12. ROSUVASTATIN CALCIUM [Concomitant]
  13. TRAZODONE HYDROCHLORIDE [Concomitant]
  14. ALPRAZOLAM [Concomitant]
  15. FLUVOXAMINE MALEATE [Concomitant]
  16. HALCION [Concomitant]
  17. ALPRAZOLAM [Concomitant]
  18. DORAL [Concomitant]

REACTIONS (6)
  - COMPLETED SUICIDE [None]
  - DRUG INEFFECTIVE [None]
  - DYSURIA [None]
  - INSOMNIA [None]
  - NERVOUSNESS [None]
  - PALPITATIONS [None]
